FAERS Safety Report 26010643 (Version 1)
Quarter: 2025Q4

REPORT INFORMATION
  Report Type: Spontaneous
  Country: US (occurrence: US)
  Receive Date: 20251107
  Receipt Date: 20251107
  Transmission Date: 20260118
  Serious: Yes (Other)
  Sender: RANBAXY
  Company Number: US-SUN PHARMACEUTICAL INDUSTRIES INC-2025R1-534698

PATIENT
  Age: 46 Year
  Sex: Female

DRUGS (5)
  1. HYDROXYCHLOROQUINE [Suspect]
     Active Substance: HYDROXYCHLOROQUINE
     Indication: Systemic lupus erythematosus
     Dosage: 200 MG (2.56MG/KG BY TOTAL BODY WEIGHT), CUMULATIVE DOSE , 219 G WITH A CUMULATIVE EXPOSURE PER BODY
     Route: 065
  2. PENTOSAN POLYSULFATE SODIUM [Concomitant]
     Active Substance: PENTOSAN POLYSULFATE SODIUM
     Indication: Cystitis interstitial
     Dosage: 100 MILLIGRAM, TID, CUMULATIVE PPS DOSE WAS ESTI MATED TO BE 1095 G
     Route: 048
  3. ACETAZOLAMIDE [Concomitant]
     Active Substance: ACETAZOLAMIDE
     Indication: Cystoid macular oedema
     Dosage: 125 MILLIGRAM, DAILY
     Route: 048
  4. ACETAZOLAMIDE [Concomitant]
     Active Substance: ACETAZOLAMIDE
     Dosage: 250 MILLIGRAM, BID
     Route: 048
  5. PREDNISOLONE [Concomitant]
     Active Substance: PREDNISOLONE
     Indication: Cystoid macular oedema
     Dosage: UNK, TID
     Route: 065

REACTIONS (1)
  - Maculopathy [Recovering/Resolving]
